FAERS Safety Report 10724059 (Version 1)
Quarter: 2015Q1

REPORT INFORMATION
  Report Type: Spontaneous
  Country: US (occurrence: None)
  Receive Date: 20150116
  Receipt Date: 20150116
  Transmission Date: 20150721
  Serious: No
  Sender: FDA-Public Use
  Company Number: None

PATIENT
  Age: 74 Year
  Sex: Male
  Weight: 97.52 kg

DRUGS (1)
  1. JUBLIA [Suspect]
     Active Substance: EFINACONAZOLE
     Indication: ONYCHOMYCOSIS
     Dosage: 10% 2 DROPS ONCE DAILY ON TOE NAILS
     Dates: start: 20141214, end: 20150105

REACTIONS (3)
  - Incorrect dose administered [None]
  - Product label confusion [None]
  - Device defective [None]

NARRATIVE: CASE EVENT DATE: 20150105
